FAERS Safety Report 8169246-3 (Version None)
Quarter: 2012Q1

REPORT INFORMATION
  Report Type: 
  Country: None (occurrence: None)
  Receive Date: 20120228
  Receipt Date: 20120220
  Transmission Date: 20120608
  Serious: Yes (Death, Hospitalization)
  Sender: FDA-Public Use
  Company Number: FR-BRISTOL-MYERS SQUIBB COMPANY-16408874

PATIENT
  Age: 82 Year
  Sex: Male

DRUGS (9)
  1. COUMADIN [Suspect]
     Indication: ATRIAL FIBRILLATION
     Route: 048
  2. MIRTAZAPINE [Concomitant]
  3. NEXIUM [Concomitant]
  4. REPAGLINIDE [Concomitant]
  5. OXAZEPAM [Concomitant]
  6. NEBIVOLOL HCL [Concomitant]
  7. MOVIPREP [Concomitant]
  8. LERCANIDIPINE [Concomitant]
  9. DIGOXIN [Concomitant]

REACTIONS (3)
  - COMA [None]
  - HAEMATOMA [None]
  - INTERNATIONAL NORMALISED RATIO INCREASED [None]
